FAERS Safety Report 10502648 (Version 1)
Quarter: 2014Q4

REPORT INFORMATION
  Report Type: Spontaneous
  Country: US (occurrence: None)
  Receive Date: 20141003
  Receipt Date: 20141003
  Transmission Date: 20150528
  Serious: Yes (Hospitalization)
  Sender: FDA-Public Use
  Company Number: VAL_03469_2014

PATIENT
  Sex: Male

DRUGS (14)
  1. LISINOPRIL (UNKNOWN) [Concomitant]
     Active Substance: LISINOPRIL
  2. DITROPAN (UNKNOWN) [Concomitant]
  3. OXYBUTYNIN (UNKNOWN) [Concomitant]
     Active Substance: OXYBUTYNIN
  4. CALCITRIOL. [Suspect]
     Active Substance: CALCITRIOL
     Indication: PRODUCT USED FOR UNKNOWN INDICATION
     Route: 048
  5. NEOSPORIN /00130801/ (UNKNOWN) [Concomitant]
  6. NUTROPIN AQ [Suspect]
     Active Substance: SOMATROPIN
     Indication: BODY HEIGHT BELOW NORMAL
     Route: 058
     Dates: start: 20070821
  7. SINGULAIR (UNKNOWN) [Concomitant]
  8. BOTOX (UNKNOWN) [Concomitant]
  9. NORVASC (UNKNOWN) [Concomitant]
  10. SENOKOT /00142201/ (UNKNOWN) [Concomitant]
  11. FERROUS SULFATE (UNKNOWN) [Concomitant]
     Active Substance: FERROUS SULFATE\FERROUS SULFATE, DRIED
  12. MEGESTROL [Concomitant]
     Active Substance: MEGESTROL
  13. SODIUM BICARBONATE (UNKNOWN) [Concomitant]
  14. MEGACE [Concomitant]
     Active Substance: MEGESTROL ACETATE

REACTIONS (8)
  - Kidney fibrosis [None]
  - Urinary tract infection [None]
  - Reflux nephropathy [None]
  - Respiratory disorder [None]
  - Hydronephrosis [None]
  - Vesicoureteric reflux [None]
  - Scoliosis [None]
  - Bladder trabeculation [None]
